FAERS Safety Report 6148721-7 (Version None)
Quarter: 2009Q2

REPORT INFORMATION
  Report Type: 
  Country: None (occurrence: None)
  Receive Date: 20090408
  Receipt Date: 20090329
  Transmission Date: 20091009
  Serious: Yes (Death, Disabling)
  Sender: FDA-Public Use
  Company Number: JP-ABBOTT-09P-087-0561991-00

PATIENT
  Age: 78 Year
  Sex: Male
  Weight: 55 kg

DRUGS (4)
  1. LEUPLIN SR FOR INJECTION 11.25 MG [Suspect]
     Indication: PROSTATE CANCER STAGE IV
     Route: 058
     Dates: start: 20070124, end: 20070927
  2. CASODEX [Concomitant]
     Indication: PROSTATE CANCER STAGE IV
     Route: 048
     Dates: end: 20071010
  3. FLIVAS [Concomitant]
     Indication: DYSURIA
     Route: 048
     Dates: end: 20071010
  4. ETHINYLESTRADIOL [Concomitant]
     Indication: PROSTATE CANCER STAGE IV
     Route: 048
     Dates: start: 20071017, end: 20071110

REACTIONS (5)
  - ANAEMIA [None]
  - BLOOD ALKALINE PHOSPHATASE INCREASED [None]
  - BLOOD LACTATE DEHYDROGENASE INCREASED [None]
  - CARDIO-RESPIRATORY ARREST [None]
  - WHITE BLOOD CELL COUNT INCREASED [None]
